FAERS Safety Report 7360814-5 (Version None)
Quarter: 2011Q1

REPORT INFORMATION
  Report Type: 
  Country: None (occurrence: None)
  Receive Date: 20110318
  Receipt Date: 20110308
  Transmission Date: 20110831
  Serious: Yes (Disabling)
  Sender: FDA-Public Use
  Company Number: ES-SANOFI-AVENTIS-2011SA014586

PATIENT
  Age: 58 Year
  Sex: Male

DRUGS (8)
  1. ACENOCOUMAROL [Concomitant]
  2. ATENOLOL [Concomitant]
  3. MULTAQ [Suspect]
     Indication: ATRIAL FIBRILLATION
     Route: 048
     Dates: start: 20100101
  4. OXYGEN [Concomitant]
  5. IRBESARTAN [Concomitant]
  6. ORAL ANTIDIABETICS [Concomitant]
     Indication: DIABETES MELLITUS
  7. ALL OTHER THERAPEUTIC PRODUCTS [Concomitant]
  8. ALL OTHER THERAPEUTIC PRODUCTS [Concomitant]

REACTIONS (5)
  - RENAL IMPAIRMENT [None]
  - FATIGUE [None]
  - LIVER INJURY [None]
  - ABDOMINAL PAIN [None]
  - ABASIA [None]
